FAERS Safety Report 5929924-0 (Version None)
Quarter: 2008Q4

REPORT INFORMATION
  Report Type: 
  Country: None (occurrence: None)
  Receive Date: 20081024
  Receipt Date: 20081015
  Transmission Date: 20090506
  Serious: Yes (Hospitalization)
  Sender: FDA-Public Use
  Company Number: US-SANOFI-SYNTHELABO-A03200803266

PATIENT
  Sex: Female
  Weight: 105.7 kg

DRUGS (13)
  1. AMBIEN [Suspect]
     Indication: INSOMNIA
     Route: 048
     Dates: start: 20060901, end: 20080910
  2. LISINOPRIL [Concomitant]
     Indication: DRUG USE FOR UNKNOWN INDICATION
     Route: 048
  3. VYTORIN [Concomitant]
     Indication: DRUG USE FOR UNKNOWN INDICATION
     Dosage: 10/20 MG
     Route: 048
  4. FLUOXETINE [Concomitant]
     Indication: DRUG USE FOR UNKNOWN INDICATION
     Route: 048
  5. VIGAMOX [Concomitant]
     Indication: DRUG USE FOR UNKNOWN INDICATION
     Route: 047
  6. HYDROCHLOROTHIAZIDE [Concomitant]
     Indication: DRUG USE FOR UNKNOWN INDICATION
     Route: 048
  7. NIFEDIPINE [Concomitant]
     Indication: DRUG USE FOR UNKNOWN INDICATION
     Route: 048
  8. ASPIRIN [Concomitant]
     Indication: DRUG USE FOR UNKNOWN INDICATION
     Route: 048
  9. ASPIRIN [Concomitant]
     Route: 048
  10. POTASSIUM CHLORIDE [Concomitant]
     Indication: DRUG USE FOR UNKNOWN INDICATION
     Route: 048
  11. PREDNISONE TAB [Concomitant]
     Indication: MYASTHENIA GRAVIS
     Route: 048
  12. METOPROLOL TARTRATE [Concomitant]
     Indication: DRUG USE FOR UNKNOWN INDICATION
     Route: 048
  13. CYCLOSPORINE [Concomitant]
     Indication: MYASTHENIA GRAVIS
     Route: 048

REACTIONS (6)
  - AMNESIA [None]
  - BALANCE DISORDER [None]
  - EYEBALL RUPTURE [None]
  - FALL [None]
  - RADIUS FRACTURE [None]
  - SOMNAMBULISM [None]
